FAERS Safety Report 6210798-8 (Version None)
Quarter: 2009Q2

REPORT INFORMATION
  Report Type: 
  Country: None (occurrence: None)
  Receive Date: 20090527
  Receipt Date: 20090514
  Transmission Date: 20091009
  Serious: Yes (Hospitalization)
  Sender: FDA-Public Use
  Company Number: 234050K09USA

PATIENT
  Age: 34 Year
  Sex: Male
  Weight: 94 kg

DRUGS (2)
  1. REBIF [Suspect]
     Indication: MULTIPLE SCLEROSIS
     Dosage: 44 MCG, 3 IN 1 WEEKS, SUBCUTANEOUS
     Route: 058
     Dates: start: 20081009
  2. BACLOFEN [Concomitant]

REACTIONS (3)
  - ARTHROPOD BITE [None]
  - DEHYDRATION [None]
  - JOINT SWELLING [None]
